FAERS Safety Report 16406069 (Version 1)
Quarter: 2019Q2

REPORT INFORMATION
  Report Type: Spontaneous
  Country: US (occurrence: US)
  Receive Date: 20190607
  Receipt Date: 20190607
  Transmission Date: 20190711
  Serious: No
  Sender: FDA-Public Use
  Company Number: US-ALLERGAN-1901509US

PATIENT
  Age: 27 Year
  Sex: Male

DRUGS (8)
  1. VENLAFAXINE [Suspect]
     Active Substance: VENLAFAXINE HYDROCHLORIDE
     Indication: POST-TRAUMATIC STRESS DISORDER
     Dosage: 37.5 MG, UNKNOWN
     Route: 048
     Dates: start: 20190121
  2. VIBERZI [Suspect]
     Active Substance: ELUXADOLINE
     Dosage: 50 MG, BID
     Route: 048
  3. VIBERZI [Suspect]
     Active Substance: ELUXADOLINE
     Indication: GASTROINTESTINAL BACTERIAL OVERGROWTH
     Dosage: UNK UNK, QOD
     Route: 048
  4. HYOSCYAMINE. [Concomitant]
     Active Substance: HYOSCYAMINE
     Indication: MUSCLE SPASMS
     Dosage: 0.125 ML, PRN
     Route: 048
  5. VIBERZI [Suspect]
     Active Substance: ELUXADOLINE
     Indication: IRRITABLE BOWEL SYNDROME
     Dosage: 75 MG, BID WITH FOOD
     Route: 048
  6. GABAPENTIN. [Concomitant]
     Active Substance: GABAPENTIN
     Indication: NEURALGIA
     Dosage: 100 MG, UNK
     Route: 048
  7. AMITRIPTYLINE [Concomitant]
     Active Substance: AMITRIPTYLINE
     Route: 065
  8. VIBERZI [Suspect]
     Active Substance: ELUXADOLINE
     Dosage: 100 MG, BID
     Route: 048
     Dates: start: 2016

REACTIONS (23)
  - Blood pressure increased [Not Recovered/Not Resolved]
  - Drug withdrawal syndrome [Unknown]
  - Blood glucose decreased [Not Recovered/Not Resolved]
  - Urinary hesitation [Unknown]
  - Nausea [Unknown]
  - Cystitis interstitial [Unknown]
  - Fibromyalgia [Unknown]
  - Wrong technique in product usage process [Unknown]
  - Off label use [Unknown]
  - Throat irritation [Unknown]
  - Urinary incontinence [Unknown]
  - Chromaturia [Unknown]
  - Thirst [Unknown]
  - Urinary retention [Unknown]
  - Pollakiuria [Not Recovered/Not Resolved]
  - Hyperhidrosis [Not Recovered/Not Resolved]
  - Urethral pain [Not Recovered/Not Resolved]
  - Muscle spasms [Recovered/Resolved]
  - Constipation [Recovered/Resolved]
  - Pelvic pain [Not Recovered/Not Resolved]
  - Rash [Recovered/Resolved]
  - Tremor [Unknown]
  - Product physical issue [Unknown]

NARRATIVE: CASE EVENT DATE: 2016
